FAERS Safety Report 7082055-1 (Version None)
Quarter: 2010Q4

REPORT INFORMATION
  Report Type: 
  Country: None (occurrence: None)
  Receive Date: 20101103
  Receipt Date: 20101030
  Transmission Date: 20110411
  Serious: No
  Sender: FDA-Public Use
  Company Number: US-PFIZER INC-2010138359

PATIENT
  Sex: Female
  Weight: 53.5 kg

DRUGS (2)
  1. ZMAX [Suspect]
     Indication: SINUSITIS
     Dosage: 2 G, UNK
     Route: 048
     Dates: start: 20101027
  2. BROMPHENIRAMINE MALEATE [Concomitant]
     Dosage: UNK

REACTIONS (1)
  - PRURITUS [None]
